FAERS Safety Report 4452470-0 (Version None)
Quarter: 2004Q3

REPORT INFORMATION
  Report Type: 
  Country: None (occurrence: None)
  Receive Date: 20040916
  Receipt Date: 20040902
  Transmission Date: 20050211
  Serious: Yes (Hospitalization, Other)
  Sender: FDA-Public Use
  Company Number: 98-01-0465

PATIENT
  Age: 65 Year
  Sex: Male

DRUGS (5)
  1. INTRON A [Suspect]
     Indication: CARCINOID TUMOUR OF THE SMALL BOWEL
     Dosage: SEE IMAGE
     Route: 058
     Dates: start: 19970501, end: 19970901
  2. INTRON A [Suspect]
     Indication: METASTATIC NEOPLASM
     Dosage: SEE IMAGE
     Route: 058
     Dates: start: 19970501, end: 19970901
  3. INTRON A [Suspect]
     Indication: CARCINOID TUMOUR OF THE SMALL BOWEL
     Dosage: SEE IMAGE
     Route: 058
     Dates: start: 19970901, end: 19971112
  4. INTRON A [Suspect]
     Indication: METASTATIC NEOPLASM
     Dosage: SEE IMAGE
     Route: 058
     Dates: start: 19970901, end: 19971112
  5. DETICENE [Concomitant]

REACTIONS (10)
  - ASTHENIA [None]
  - BIOPSY KIDNEY ABNORMAL [None]
  - CONDITION AGGRAVATED [None]
  - DIALYSIS [None]
  - DRUG TOXICITY [None]
  - NAUSEA [None]
  - OLIGURIA [None]
  - RENAL FAILURE ACUTE [None]
  - TUBULOINTERSTITIAL NEPHRITIS [None]
  - VOMITING [None]
